FAERS Safety Report 19184732 (Version 2)
Quarter: 2021Q2

REPORT INFORMATION
  Report Type: Report from Study
  Country: US (occurrence: US)
  Receive Date: 20210427
  Receipt Date: 20210504
  Transmission Date: 20210717
  Serious: Yes (Other)
  Sender: FDA-Public Use
  Company Number: US-JNJFOC-20210438144

PATIENT
  Age: 76 Year
  Sex: Female

DRUGS (1)
  1. SPRAVATO [Suspect]
     Active Substance: ESKETAMINE
     Indication: DEPRESSION

REACTIONS (7)
  - Depression [Unknown]
  - Anxiety [Unknown]
  - Dementia [Unknown]
  - Bradyphrenia [Unknown]
  - Organic brain syndrome [Unknown]
  - Parkinsonism [Unknown]
  - Drug ineffective [Unknown]
